FAERS Safety Report 6107515-9 (Version None)
Quarter: 2009Q1

REPORT INFORMATION
  Report Type: 
  Country: None (occurrence: None)
  Receive Date: 20090302
  Receipt Date: 20080423
  Transmission Date: 20090719
  Serious: Yes (Hospitalization, Other)
  Sender: FDA-Public Use
  Company Number: WAES 0804USA05933

PATIENT
  Age: 76 Year
  Sex: Male

DRUGS (13)
  1. PRINIVIL [Suspect]
     Dosage: 10 MG/AM/PO
     Route: 048
     Dates: start: 20040601
  2. AMBIEN [Concomitant]
  3. COLACE [Concomitant]
  4. COUMADIN [Concomitant]
  5. LASIX [Concomitant]
  6. PLAVIX [Concomitant]
  7. PREVACID [Concomitant]
  8. TOPROL-XL [Concomitant]
  9. ZOCOR [Concomitant]
  10. AMIODARONE HCL [Concomitant]
  11. DIGOXIN [Concomitant]
  12. POTASSIUM CHLORIDE [Concomitant]
  13. VITAMINS [Concomitant]

REACTIONS (4)
  - ARRHYTHMIA [None]
  - CARDIAC FAILURE CONGESTIVE [None]
  - HYPERKALAEMIA [None]
  - RENAL FAILURE ACUTE [None]
